FAERS Safety Report 4319043-1 (Version None)
Quarter: 2004Q1

REPORT INFORMATION
  Report Type: 
  Country: None (occurrence: None)
  Receive Date: 20040318
  Receipt Date: 20040318
  Transmission Date: 20041129
  Serious: Yes (Life-Threatening, Other)
  Sender: FDA-Public Use
  Company Number: None

PATIENT
  Age: 19 Year
  Sex: Female
  Weight: 45.3597 kg

DRUGS (1)
  1. PHENTERMINE [Suspect]
     Dosage: ONE TIME DAY ORAL
     Route: 048

REACTIONS (1)
  - MEDICATION ERROR [None]
